FAERS Safety Report 4995859-3 (Version None)
Quarter: 2006Q1

REPORT INFORMATION
  Report Type: 
  Country: None (occurrence: None)
  Receive Date: 20060315
  Receipt Date: 20051207
  Transmission Date: 20060701
  Serious: Yes (Other)
  Sender: FDA-Public Use
  Company Number: 428044

PATIENT
  Age: 75 Year
  Sex: Female

DRUGS (5)
  1. BONIVA [Suspect]
     Indication: OSTEOPOROSIS
     Dosage: 150 MG 1 PER MONTH ORAL
     Route: 048
     Dates: start: 20051201, end: 20051201
  2. NITROGLYCERIN [Concomitant]
  3. LEVBID (HYOSCYAMINE SULFATE) [Concomitant]
  4. DONNATAL [Concomitant]
  5. NEXIUM [Concomitant]

REACTIONS (6)
  - ARTHRALGIA [None]
  - BACK PAIN [None]
  - BONE PAIN [None]
  - CHEST PAIN [None]
  - DIARRHOEA [None]
  - PAIN IN EXTREMITY [None]
